FAERS Safety Report 15568309 (Version 1)
Quarter: 2018Q4

REPORT INFORMATION
  Report Type: Other
  Country: DE (occurrence: DE)
  Receive Date: 20181031
  Receipt Date: 20181031
  Transmission Date: 20190205
  Serious: Yes (Life-Threatening, Hospitalization, Other)
  Sender: FDA-Public Use
  Company Number: DE-LUPIN PHARMACEUTICALS INC.-2018-05977

PATIENT
  Age: 50 Year
  Sex: Male

DRUGS (3)
  1. BUPROPION. [Suspect]
     Active Substance: BUPROPION
     Indication: SUICIDE ATTEMPT
     Dosage: 300 MG, QD
     Route: 048
     Dates: end: 20180107
  2. MIRTAZAPINE. [Suspect]
     Active Substance: MIRTAZAPINE
     Indication: PRODUCT USED FOR UNKNOWN INDICATION
     Dosage: 30 MG, QD (TAKING FOR MONTHS)
     Route: 048
     Dates: end: 20180108
  3. BUPROPION. [Suspect]
     Active Substance: BUPROPION
     Dosage: 3000 MG, UNK (CA. 3000 MG, SUICIDAL INTENTION)
     Route: 048
     Dates: start: 20180108

REACTIONS (1)
  - Generalised tonic-clonic seizure [Recovered/Resolved]

NARRATIVE: CASE EVENT DATE: 20180108
